FAERS Safety Report 12147385 (Version 1)
Quarter: 2016Q1

REPORT INFORMATION
  Report Type: Report from Study
  Country: BR (occurrence: BR)
  Receive Date: 20160304
  Receipt Date: 20160304
  Transmission Date: 20160526
  Serious: Yes (Other)
  Sender: FDA-Public Use
  Company Number: PHHY2016BR027467

PATIENT
  Sex: Female
  Weight: 63 kg

DRUGS (1)
  1. SANDOSTATIN LAR DEPOT [Suspect]
     Active Substance: OCTREOTIDE ACETATE
     Indication: NEUROENDOCRINE TUMOUR
     Dosage: 30 MG, UNK
     Route: 030

REACTIONS (6)
  - Neoplasm [Unknown]
  - Liver injury [Unknown]
  - Diabetes mellitus [Unknown]
  - Hepatic neoplasm [Unknown]
  - Malignant neoplasm progression [Unknown]
  - Confusional state [Unknown]
